FAERS Safety Report 7521462-7 (Version None)
Quarter: 2011Q2

REPORT INFORMATION
  Report Type: 
  Country: None (occurrence: None)
  Receive Date: 20110603
  Receipt Date: 20110414
  Transmission Date: 20111010
  Serious: Yes (Hospitalization, Other)
  Sender: FDA-Public Use
  Company Number: US-BAYER-201011145NA

PATIENT
  Age: 55 Year
  Sex: Female

DRUGS (11)
  1. NEXAVAR [Suspect]
     Indication: HEPATIC NEOPLASM MALIGNANT
     Dosage: 200 MG, BID
     Route: 048
     Dates: start: 20100104, end: 20100101
  2. NEXAVAR [Suspect]
     Dosage: 400 MG, BID
     Route: 048
     Dates: start: 20100224
  3. NEXAVAR [Suspect]
     Dosage: 200 MG, BID
     Route: 048
     Dates: start: 20100104
  4. PREDNISONE [Concomitant]
  5. ALLEGRA [Concomitant]
  6. MULTI-VITAMIN [Concomitant]
  7. NEXAVAR [Suspect]
  8. NEXAVAR [Suspect]
     Dosage: 400 MG, BID
     Dates: end: 20110101
  9. NEXAVAR [Suspect]
     Dosage: 200 MG, BID
     Dates: start: 20110401
  10. PLAQUENIL [Concomitant]
  11. NEXAVAR [Suspect]
     Route: 048
     Dates: start: 20100101, end: 20100202

REACTIONS (19)
  - METASTASES TO SPINE [None]
  - BLOOD PRESSURE INCREASED [None]
  - INCISION SITE PAIN [None]
  - WEIGHT DECREASED [None]
  - PYREXIA [None]
  - VASCULITIS [None]
  - DRY SKIN [None]
  - BLISTER [None]
  - BACK PAIN [None]
  - PALMAR-PLANTAR ERYTHRODYSAESTHESIA SYNDROME [None]
  - DECREASED APPETITE [None]
  - RASH [None]
  - RASH PAPULAR [None]
  - METASTASES TO BONE [None]
  - ALOPECIA [None]
  - DYSPEPSIA [None]
  - OEDEMA PERIPHERAL [None]
  - MUSCULOSKELETAL STIFFNESS [None]
  - NAUSEA [None]
